FAERS Safety Report 18985483 (Version 1)
Quarter: 2021Q1

REPORT INFORMATION
  Report Type: Spontaneous
  Country: FR (occurrence: FR)
  Receive Date: 20210309
  Receipt Date: 20210309
  Transmission Date: 20210420
  Serious: Yes (Hospitalization, Other)
  Sender: FDA-Public Use
  Company Number: FR-SA-2021SA077815

PATIENT

DRUGS (1)
  1. DUPILUMAB [Suspect]
     Active Substance: DUPILUMAB
     Indication: DERMATITIS ATOPIC

REACTIONS (7)
  - C-reactive protein abnormal [Unknown]
  - Laboratory test abnormal [Unknown]
  - Eosinophilic pleural effusion [Unknown]
  - Dyspnoea [Unknown]
  - Pleurisy [Unknown]
  - Pleural effusion [Unknown]
  - Pleural thickening [Unknown]

NARRATIVE: CASE EVENT DATE: 202101
